FAERS Safety Report 24112888 (Version 1)
Quarter: 2024Q3

REPORT INFORMATION
  Report Type: Spontaneous
  Country: US (occurrence: US)
  Receive Date: 20240719
  Receipt Date: 20240719
  Transmission Date: 20241017
  Serious: No
  Sender: PURDUE
  Company Number: US-PURDUE PHARMA-USA-2024-0310833

PATIENT
  Sex: Male

DRUGS (8)
  1. OXYCODONE HYDROCHLORIDE [Suspect]
     Active Substance: OXYCODONE HYDROCHLORIDE
     Indication: Back pain
     Dosage: UNK
     Route: 065
  2. INLYTA [Concomitant]
     Active Substance: AXITINIB
     Indication: Renal cell carcinoma
     Dosage: UNK MILLIGRAM, TID (1-1 MG TABLET BY MOUTH THREE TIMES DAILY)
     Route: 048
  3. INLYTA [Concomitant]
     Active Substance: AXITINIB
     Dosage: UNK MILLIGRAM, BID (3-1 MG TABLET TWICE DAILY WITH KEYTRUDA TITRATION)
     Route: 048
     Dates: start: 202006
  4. INLYTA [Concomitant]
     Active Substance: AXITINIB
     Dosage: 5 MILLIGRAM (UNKNOWN CYCLE)
     Route: 048
     Dates: start: 202006
  5. INLYTA [Concomitant]
     Active Substance: AXITINIB
     Dosage: UNK MILLIGRAM, TID (1-1 MG TABLET BY MOUTH THREE TIMES DAILY)
     Route: 048
     Dates: start: 202403
  6. INLYTA [Concomitant]
     Active Substance: AXITINIB
     Dosage: 1 MILLIGRAM, TID
     Route: 048
     Dates: start: 202006
  7. KEYTRUDA [Concomitant]
     Active Substance: PEMBROLIZUMAB
     Indication: Product used for unknown indication
     Dosage: UNK (EVERY 2 WEEK)
     Route: 065
     Dates: start: 202006
  8. PREDNISONE [Concomitant]
     Active Substance: PREDNISONE
     Indication: Product used for unknown indication
     Dosage: UNK, DAILY
     Route: 065

REACTIONS (2)
  - Product dose omission issue [Unknown]
  - Product availability issue [Unknown]
